FAERS Safety Report 6107190-3 (Version None)
Quarter: 2009Q1

REPORT INFORMATION
  Report Type: 
  Country: None (occurrence: None)
  Receive Date: 20090309
  Receipt Date: 20090209
  Transmission Date: 20090719
  Serious: Yes (Hospitalization, Other)
  Sender: FDA-Public Use
  Company Number: TH-ELI_LILLY_AND_COMPANY-TH200903001139

PATIENT
  Age: 80 Year
  Sex: Male

DRUGS (2)
  1. HUMULIN R [Suspect]
     Dosage: 10000 IU, OTHER
     Route: 058
  2. HUMULIN N [Suspect]
     Dosage: 6000 IU, OTHER
     Route: 058
     Dates: start: 20000101, end: 20000101

REACTIONS (14)
  - CARDIAC MURMUR [None]
  - HEPATIC ENZYME INCREASED [None]
  - HYPERHIDROSIS [None]
  - HYPOGLYCAEMIA [None]
  - HYPOKALAEMIA [None]
  - HYPONATRAEMIA [None]
  - HYPOPHOSPHATAEMIA [None]
  - INTENTIONAL OVERDOSE [None]
  - LEUKOCYTOSIS [None]
  - LOSS OF CONSCIOUSNESS [None]
  - PYREXIA [None]
  - RALES [None]
  - SUICIDE ATTEMPT [None]
  - TREMOR [None]
